FAERS Safety Report 14219608 (Version 2)
Quarter: 2017Q4

REPORT INFORMATION
  Report Type: Spontaneous
  Country: TR (occurrence: TR)
  Receive Date: 20171123
  Receipt Date: 20171206
  Transmission Date: 20180321
  Serious: Yes (Other)
  Sender: FDA-Public Use
  Company Number: TR-ASTRAZENECA-2017SF17742

PATIENT
  Sex: Female
  Weight: 12 kg

DRUGS (2)
  1. PULMICORT TURBUHALER [Suspect]
     Active Substance: BUDESONIDE
     Indication: BRONCHIOLITIS
     Dosage: TWICE A DAY
     Route: 055
     Dates: start: 20171004
  2. PULMICORT TURBUHALER [Suspect]
     Active Substance: BUDESONIDE
     Indication: ASTHMA
     Dosage: TWICE A DAY
     Route: 055
     Dates: start: 20171004

REACTIONS (3)
  - Superinfection [Unknown]
  - Otitis media [Recovering/Resolving]
  - Tonsillitis [Recovering/Resolving]
